FAERS Safety Report 11971030 (Version 3)
Quarter: 2017Q1

REPORT INFORMATION
  Report Type: Spontaneous
  Country: US (occurrence: US)
  Receive Date: 20160128
  Receipt Date: 20170324
  Transmission Date: 20170428
  Serious: Yes (Other)
  Sender: FDA-Public Use
  Company Number: US-ELI_LILLY_AND_COMPANY-US201601009749

PATIENT
  Sex: Female

DRUGS (2)
  1. CYMBALTA [Suspect]
     Active Substance: DULOXETINE HYDROCHLORIDE
     Indication: PAIN
     Dosage: UNK, UNKNOWN
     Route: 065
  2. CYMBALTA [Suspect]
     Active Substance: DULOXETINE HYDROCHLORIDE
     Indication: DEPRESSION

REACTIONS (21)
  - Paraesthesia [Unknown]
  - Dizziness [Unknown]
  - Sensory disturbance [Unknown]
  - Confusional state [Unknown]
  - Migraine [Unknown]
  - Nausea [Unknown]
  - Depression [Unknown]
  - Anxiety [Unknown]
  - Headache [Not Recovered/Not Resolved]
  - Vomiting [Unknown]
  - Vertigo [Unknown]
  - Sleep disorder [Unknown]
  - Diarrhoea [Unknown]
  - Tinnitus [Unknown]
  - Affect lability [Unknown]
  - Withdrawal syndrome [Unknown]
  - Fatigue [Unknown]
  - Irritability [Unknown]
  - Hyperhidrosis [Unknown]
  - Suicidal ideation [Unknown]
  - Lethargy [Unknown]
